FAERS Safety Report 6520035-2 (Version None)
Quarter: 2009Q4

REPORT INFORMATION
  Report Type: 
  Country: None (occurrence: None)
  Receive Date: 20091229
  Receipt Date: 20091218
  Transmission Date: 20100525
  Serious: Yes (Hospitalization)
  Sender: FDA-Public Use
  Company Number: BR-ROCHE-675691

PATIENT
  Age: 15 Year
  Sex: Male
  Weight: 66 kg

DRUGS (2)
  1. ROACUTAN [Suspect]
     Indication: DRUG USE FOR UNKNOWN INDICATION
     Route: 065
  2. SPORANOX [Concomitant]

REACTIONS (1)
  - HAEMORRHAGE INTRACRANIAL [None]
